FAERS Safety Report 18777544 (Version 2)
Quarter: 2021Q1

REPORT INFORMATION
  Report Type: Spontaneous
  Country: JP (occurrence: JP)
  Receive Date: 20210122
  Receipt Date: 20210127
  Transmission Date: 20210419
  Serious: No
  Sender: FDA-Public Use
  Company Number: JP-JAZZ-2021-JP-000951

PATIENT
  Age: 40 Year
  Sex: Male

DRUGS (1)
  1. DEFITELIO [Suspect]
     Active Substance: DEFIBROTIDE SODIUM
     Indication: VENOOCCLUSIVE LIVER DISEASE
     Dosage: UNKNWON DOSE
     Route: 042
     Dates: start: 20210106

REACTIONS (1)
  - Blood sodium increased [Unknown]

NARRATIVE: CASE EVENT DATE: 2021
